FAERS Safety Report 8154675-4 (Version None)
Quarter: 2012Q1

REPORT INFORMATION
  Report Type: 
  Country: None (occurrence: None)
  Receive Date: 20120221
  Receipt Date: 20120207
  Transmission Date: 20120608
  Serious: Yes (Other)
  Sender: FDA-Public Use
  Company Number: CHPA2012US001618

PATIENT
  Sex: Female

DRUGS (11)
  1. EXCEDRIN EXTRA STRENGTH TABLETS [Suspect]
     Indication: MIGRAINE
     Dosage: 2 DF, PRN
     Route: 048
  2. BYSTOLIC [Concomitant]
     Dosage: 10 MG, QD
     Route: 048
  3. BROMOCRIPTINE MESYLATE [Concomitant]
     Dosage: 2.5 MG, QD
     Route: 048
  4. POTASSIUM CHLORIDE [Concomitant]
     Dosage: 20 MEQ, QD
     Route: 048
  5. PROBIOTICS [Concomitant]
     Dosage: 1 DF, QD
     Route: 048
  6. CRESTOR [Concomitant]
     Dosage: 10 MG, QD
     Route: 048
  7. MIRALAX [Concomitant]
     Dosage: 1 DF, QD
     Route: 048
  8. ASPIRIN [Concomitant]
     Dosage: 81 MG, QD
     Route: 048
  9. ALPRAZOLAM [Concomitant]
     Dosage: 0.25 MG, QD
     Route: 048
  10. LEVOTHYROXINE SODIUM [Concomitant]
     Dosage: 1 DF, QD
     Route: 048
  11. LOTREL [Concomitant]
     Dosage: 1 DF, QD
     Route: 048

REACTIONS (9)
  - HIATUS HERNIA [None]
  - MALAISE [None]
  - ABDOMINAL PAIN [None]
  - DYSPHAGIA [None]
  - ABDOMINAL DISTENSION [None]
  - NAUSEA [None]
  - GASTRITIS EROSIVE [None]
  - ASTHENIA [None]
  - DYSGEUSIA [None]
